FAERS Safety Report 10941187 (Version 2)
Quarter: 2015Q2

REPORT INFORMATION
  Report Type: Spontaneous
  Country: US (occurrence: US)
  Receive Date: 20150322
  Receipt Date: 20150524
  Transmission Date: 20150821
  Serious: Yes (Other)
  Sender: FDA-Public Use
  Company Number: US-JNJFOC-20140802328

PATIENT
  Sex: Female

DRUGS (5)
  1. LISINOPRIL. [Concomitant]
     Active Substance: LISINOPRIL
     Indication: BLOOD PRESSURE ABNORMAL
  2. METFORMIN [Concomitant]
     Active Substance: METFORMIN HYDROCHLORIDE
     Indication: DIABETES MELLITUS INADEQUATE CONTROL
  3. INVOKANA [Suspect]
     Active Substance: CANAGLIFLOZIN
     Indication: TYPE 2 DIABETES MELLITUS
     Route: 048
     Dates: start: 201407
  4. JANUMET [Concomitant]
     Active Substance: METFORMIN HYDROCHLORIDE\SITAGLIPTIN PHOSPHATE
     Dates: start: 201407
  5. NOVOLOG 70/30 INSULIN [Concomitant]
     Indication: DIABETES MELLITUS INADEQUATE CONTROL
     Dates: start: 201407

REACTIONS (6)
  - Balance disorder [Recovered/Resolved]
  - Presyncope [Not Recovered/Not Resolved]
  - Somnolence [Not Recovered/Not Resolved]
  - Listless [Not Recovered/Not Resolved]
  - Asthenia [Not Recovered/Not Resolved]
  - Nonspecific reaction [Not Recovered/Not Resolved]

NARRATIVE: CASE EVENT DATE: 201407
